FAERS Safety Report 12248437 (Version 1)
Quarter: 2016Q2

REPORT INFORMATION
  Report Type: Spontaneous
  Country: US (occurrence: None)
  Receive Date: 20160407
  Receipt Date: 20160407
  Transmission Date: 20160815
  Serious: No
  Sender: FDA-Public Use
  Company Number: None

PATIENT
  Age: 48 Year
  Sex: Female

DRUGS (1)
  1. STELARA [Suspect]
     Active Substance: USTEKINUMAB
     Indication: PSORIASIS
     Dosage: 45MG Q10WEEKS SQ
     Route: 058
     Dates: start: 20141216

REACTIONS (2)
  - Spinal column stenosis [None]
  - Myelopathy [None]

NARRATIVE: CASE EVENT DATE: 201510
